FAERS Safety Report 7152001 (Version 2)
Quarter: 2020Q3

REPORT INFORMATION
  Report Type: Report from Study
  Country: CR (occurrence: PA)
  Receive Date: 20091019
  Receipt Date: 20100225
  Transmission Date: 20201104
  Serious: Yes (Death)
  Sender: FDA-Public Use
  Company Number: PA-ROCHE-662801

PATIENT
  Age: 76 Year
  Sex: Female

DRUGS (1)
  1. IBANDRONIC ACID. [Suspect]
     Active Substance: IBANDRONIC ACID
     Indication: OSTEOPOROSIS
     Route: 048
     Dates: start: 20071013, end: 20090913

REACTIONS (1)
  - Death [Fatal]
